FAERS Safety Report 4450116-9 (Version None)
Quarter: 2004Q3

REPORT INFORMATION
  Report Type: 
  Country: None (occurrence: None)
  Receive Date: 20040804
  Receipt Date: 20040212
  Transmission Date: 20050211
  Serious: Yes (Other)
  Sender: FDA-Public Use
  Company Number: 204707

PATIENT
  Age: 36 Year
  Sex: Female

DRUGS (3)
  1. HERCEPTIN [Suspect]
     Indication: BREAST CANCER METASTATIC
     Dosage: INTRAVENOUS
     Route: 042
     Dates: start: 20040116, end: 20040201
  2. NAVELBINE [Suspect]
     Indication: BREAST CANCER METASTATIC
     Dates: end: 20031226
  3. NAVELBINE [Suspect]
     Indication: BREAST CANCER METASTATIC
     Dates: start: 20040116, end: 20040201

REACTIONS (1)
  - RADIATION INJURY [None]
